FAERS Safety Report 5833963-8 (Version None)
Quarter: 2008Q3

REPORT INFORMATION
  Report Type: 
  Country: None (occurrence: None)
  Receive Date: 20080801
  Receipt Date: 20080801
  Transmission Date: 20090109
  Serious: Yes (Other)
  Sender: FDA-Public Use
  Company Number: None

PATIENT
  Age: 43 Year
  Sex: Female
  Weight: 70.3075 kg

DRUGS (2)
  1. TOPAMAX [Suspect]
     Indication: CONVULSION
     Dosage: 25MG 2X A DAY FOR 2 WKS PO
     Route: 048
     Dates: start: 20080523, end: 20080624
  2. TOPAMAX [Suspect]
     Dosage: 50 MG 2X A DAY FOR 2 WKS PO
     Route: 048
     Dates: start: 20080625, end: 20080727

REACTIONS (8)
  - ADVERSE DRUG REACTION [None]
  - AGITATION [None]
  - ANGER [None]
  - FATIGUE [None]
  - HUNGER [None]
  - HYPOTENSION [None]
  - SOMNOLENCE [None]
  - STOMACH DISCOMFORT [None]
